FAERS Safety Report 15070166 (Version 16)
Quarter: 2023Q4

REPORT INFORMATION
  Report Type: Spontaneous
  Country: US (occurrence: US)
  Receive Date: 20180626
  Receipt Date: 20231122
  Transmission Date: 20240110
  Serious: Yes (Death, Life-Threatening, Hospitalization, Disabling, Other)
  Sender: FDA-Public Use
  Company Number: US-AMGEN-USASP2018086177

PATIENT
  Age: 22 Year
  Sex: Male
  Weight: 83.1 kg

DRUGS (2)
  1. AIMOVIG [Suspect]
     Active Substance: ERENUMAB-AOOE
     Indication: Migraine
     Dosage: 70 MG, QMO
     Route: 058
     Dates: start: 20180617, end: 20180617
  2. TYLENOL [Concomitant]
     Active Substance: ACETAMINOPHEN
     Dosage: UNK

REACTIONS (13)
  - Respiratory failure [Fatal]
  - Cerebrovascular accident [Fatal]
  - Epilepsy [Fatal]
  - Cerebrovascular disorder [Fatal]
  - Status epilepticus [Recovered/Resolved]
  - Multiple organ dysfunction syndrome [Unknown]
  - Coma [Recovered/Resolved]
  - Pyrexia [Unknown]
  - Pneumonia [Recovering/Resolving]
  - Amnesia [Recovering/Resolving]
  - Disorientation [Recovering/Resolving]
  - Encephalomalacia [Not Recovered/Not Resolved]
  - Hippocampal sclerosis [Unknown]

NARRATIVE: CASE EVENT DATE: 20180101
